FAERS Safety Report 9309477 (Version 1)
Quarter: 2013Q2

REPORT INFORMATION
  Report Type: Spontaneous
  Country: US (occurrence: US)
  Receive Date: 20130525
  Receipt Date: 20130525
  Transmission Date: 20140414
  Serious: No
  Sender: FDA-Public Use
  Company Number: US-BRISTOL-MYERS SQUIBB COMPANY-18723221

PATIENT
  Age: 49 Year
  Sex: Male

DRUGS (7)
  1. BYDUREON [Suspect]
     Indication: TYPE 2 DIABETES MELLITUS
     Dosage: LONG ACTING RELEASE 2MG
     Route: 058
     Dates: start: 201211
  2. HYDROCORTISONE [Concomitant]
     Route: 062
  3. LISINOPRIL [Concomitant]
     Route: 048
  4. METFORMIN [Concomitant]
     Indication: TYPE 2 DIABETES MELLITUS
     Route: 048
  5. ASPIRIN [Concomitant]
     Route: 048
  6. IBUPROFEN [Concomitant]
     Route: 048
  7. TAMIFLU [Concomitant]
     Route: 048

REACTIONS (2)
  - Upper respiratory tract infection [Unknown]
  - Injection site nodule [Not Recovered/Not Resolved]
